FAERS Safety Report 11511071 (Version 3)
Quarter: 2015Q4

REPORT INFORMATION
  Report Type: Report from Study
  Country: US (occurrence: US)
  Receive Date: 20150915
  Receipt Date: 20151210
  Transmission Date: 20160304
  Serious: Yes (Other)
  Sender: FDA-Public Use
  Company Number: US-AMGEN-USASL2015090366

PATIENT
  Age: 67 Year
  Sex: Male

DRUGS (1)
  1. ENBREL [Suspect]
     Active Substance: ETANERCEPT
     Indication: RHEUMATOID ARTHRITIS
     Dosage: 50 MG, QWK
     Route: 065
     Dates: start: 20150707

REACTIONS (8)
  - Drug effect incomplete [Not Recovered/Not Resolved]
  - Fall [Unknown]
  - Cough [Unknown]
  - Joint effusion [Unknown]
  - Ligament sprain [Unknown]
  - Drug ineffective [Unknown]
  - Paranasal sinus hypersecretion [Not Recovered/Not Resolved]
  - Arthralgia [Unknown]

NARRATIVE: CASE EVENT DATE: 2015
